FAERS Safety Report 7934698-8 (Version None)
Quarter: 2011Q4

REPORT INFORMATION
  Report Type: 
  Country: None (occurrence: None)
  Receive Date: 20111122
  Receipt Date: 20110818
  Transmission Date: 20120403
  Serious: No
  Sender: FDA-Public Use
  Company Number: US-BAYER-2011-074860

PATIENT
  Age: 73 Year
  Sex: Male

DRUGS (6)
  1. METOPROLOL TARTRATE [Concomitant]
  2. NIASPAN [Concomitant]
  3. LEXAPRO [Concomitant]
  4. CRESTOR [Concomitant]
  5. LEVITRA [Suspect]
     Indication: ERECTILE DYSFUNCTION
     Dosage: 10 MG, PRN
     Route: 048
  6. VITAMIN TAB [Concomitant]

REACTIONS (1)
  - DRUG INEFFECTIVE [None]
